FAERS Safety Report 6380421-0 (Version None)
Quarter: 2009Q3

REPORT INFORMATION
  Report Type: 
  Country: None (occurrence: None)
  Receive Date: 20090929
  Receipt Date: 20090917
  Transmission Date: 20100115
  Serious: Yes (Other)
  Sender: FDA-Public Use
  Company Number: PHHY2009IT37391

PATIENT
  Sex: Female

DRUGS (2)
  1. ZOMETA [Suspect]
     Indication: BREAST CANCER
     Dosage: 4 MG MONTHLY
     Route: 042
     Dates: start: 20020101, end: 20060630
  2. CISPLATIN [Concomitant]

REACTIONS (1)
  - OSTEOMYELITIS [None]
